FAERS Safety Report 9687697 (Version 1)
Quarter: 2013Q4

REPORT INFORMATION
  Report Type: Spontaneous
  Country: US (occurrence: US)
  Receive Date: 20131114
  Receipt Date: 20131114
  Transmission Date: 20140711
  Serious: No
  Sender: FDA-Public Use
  Company Number: US-PFIZER INC-2013324807

PATIENT
  Age: 60 Year
  Sex: Female
  Weight: 96.6 kg

DRUGS (3)
  1. LYRICA [Suspect]
     Indication: FIBROMYALGIA
     Dosage: 300 MG, 3X/DAY
     Route: 048
     Dates: start: 2011, end: 201309
  2. CYMBALTA [Concomitant]
     Dosage: UNK
  3. OXYCODONE [Concomitant]
     Dosage: UNK

REACTIONS (2)
  - Burning sensation [Not Recovered/Not Resolved]
  - Pain [Not Recovered/Not Resolved]
